FAERS Safety Report 25192263 (Version 1)
Quarter: 2025Q2

REPORT INFORMATION
  Report Type: Spontaneous
  Country: US (occurrence: US)
  Receive Date: 20250414
  Receipt Date: 20250414
  Transmission Date: 20250716
  Serious: No
  Sender: MYLAN
  Company Number: US-MYLANLABS-2025M1029293

PATIENT

DRUGS (1)
  1. ESTRADIOL TRANSDERMAL SYSTEM [Suspect]
     Active Substance: ESTRADIOL
     Indication: Product used for unknown indication
     Dosage: 0.1 MILLIGRAM, QD (PER DAY, TWICE WEEKLY)

REACTIONS (3)
  - Application site induration [Unknown]
  - Application site swelling [Unknown]
  - Application site pruritus [Unknown]

NARRATIVE: CASE EVENT DATE: 20250201
